FAERS Safety Report 6663238-9 (Version None)
Quarter: 2010Q2

REPORT INFORMATION
  Report Type: 
  Country: None (occurrence: None)
  Receive Date: 20100401
  Receipt Date: 20100329
  Transmission Date: 20101027
  Serious: Yes (Hospitalization, Other)
  Sender: FDA-Public Use
  Company Number: PHHY2008MX17275

PATIENT
  Sex: Female

DRUGS (5)
  1. STALEVO 100 [Suspect]
     Indication: PARKINSON'S DISEASE
     Dosage: 2 TABS (200/50/12.5 MG) PER DAY
     Route: 048
     Dates: start: 20060101
  2. STALEVO 100 [Suspect]
     Dosage: 2.5 TABS (200/50/12.5 MG) PER DAY
     Route: 048
     Dates: start: 20090501
  3. AKATINOL [Concomitant]
     Indication: PARKINSON'S DISEASE
     Dosage: 3 TABLETS PER DAY
  4. LEVOTHYROXINE SODIUM [Concomitant]
     Indication: THYROID DISORDER
  5. LEXAPRO [Concomitant]
     Indication: ANXIETY

REACTIONS (5)
  - FALL [None]
  - FEMUR FRACTURE [None]
  - PAIN IN EXTREMITY [None]
  - SURGERY [None]
  - TREMOR [None]
